FAERS Safety Report 6193584-7 (Version None)
Quarter: 2009Q2

REPORT INFORMATION
  Report Type: 
  Country: None (occurrence: None)
  Receive Date: 20090518
  Receipt Date: 20090511
  Transmission Date: 20091009
  Serious: Yes (Hospitalization, Other)
  Sender: FDA-Public Use
  Company Number: US-ASTRAZENECA-2009UW11970

PATIENT
  Age: 61 Year
  Sex: Female
  Weight: 77.1 kg

DRUGS (13)
  1. CRESTOR [Suspect]
     Indication: BLOOD CHOLESTEROL INCREASED
     Route: 048
     Dates: start: 20080101
  2. CLONAZEPAM [Concomitant]
     Indication: CONVULSION
  3. CLONAZEPAM [Concomitant]
  4. AMBIEN [Concomitant]
     Indication: SLEEP DISORDER
  5. AMBIEN [Concomitant]
  6. KEPPRA [Concomitant]
     Indication: CONVULSION
  7. KEPPRA [Concomitant]
  8. LASIX [Concomitant]
  9. PRILOSEC [Concomitant]
  10. PLAVIX [Concomitant]
  11. POTASSIUM CHLORIDE [Concomitant]
  12. ASPIRIN [Concomitant]
  13. LORTAB [Concomitant]
     Indication: PAIN

REACTIONS (5)
  - CARDIAC ARREST [None]
  - CHEST PAIN [None]
  - CONVULSION [None]
  - HYPERTENSION [None]
  - SPINAL COLUMN STENOSIS [None]
